FAERS Safety Report 18964628 (Version 1)
Quarter: 2021Q1

REPORT INFORMATION
  Report Type: Spontaneous
  Country: US (occurrence: US)
  Receive Date: 20210303
  Receipt Date: 20210303
  Transmission Date: 20210420
  Serious: No
  Sender: FDA-Public Use
  Company Number: US-AMNEAL PHARMACEUTICALS-2020-AMRX-03893

PATIENT
  Age: 66 Year
  Sex: Male

DRUGS (1)
  1. RYTARY [Suspect]
     Active Substance: CARBIDOPA\LEVODOPA
     Indication: PRODUCT USED FOR UNKNOWN INDICATION
     Dosage: 9 CAPSULES, DAILY (2 CAPSULES BY MOUTH FOUR TIMES A DAY AND 1 CAPSULE AT BEDTIME)
     Route: 048

REACTIONS (3)
  - Drug intolerance [Unknown]
  - Product substitution issue [Unknown]
  - Tremor [Unknown]

NARRATIVE: CASE EVENT DATE: 20201209
